FAERS Safety Report 25820349 (Version 1)
Quarter: 2025Q3

REPORT INFORMATION
  Report Type: Spontaneous
  Country: EU (occurrence: EU)
  Receive Date: 20250919
  Receipt Date: 20250919
  Transmission Date: 20251021
  Serious: Yes (Hospitalization, Other)
  Sender: BRISTOL-MYERS SQUIBB COMPANY
  Company Number: None

PATIENT
  Age: 68 Year
  Sex: Female
  Weight: 76 kg

DRUGS (1)
  1. OPDUALAG [Suspect]
     Active Substance: NIVOLUMAB\RELATLIMAB-RMBW
     Indication: Malignant melanoma
     Dosage: 2 AMPULES EVERY 4 WEEKS?OPDUALAG 240MG/80MG
     Dates: start: 20250326, end: 20250813

REACTIONS (4)
  - Thrombocytopenia [Recovering/Resolving]
  - Petechiae [Recovering/Resolving]
  - Gingival bleeding [Recovering/Resolving]
  - Haematoma [Recovering/Resolving]

NARRATIVE: CASE EVENT DATE: 20250903
